APPROVED DRUG PRODUCT: SUMATRIPTAN SUCCINATE
Active Ingredient: SUMATRIPTAN SUCCINATE
Strength: EQ 6MG BASE/0.5ML (EQ 12MG BASE/ML)
Dosage Form/Route: INJECTABLE;SUBCUTANEOUS
Application: A079240 | Product #002
Applicant: FRESENIUS KABI USA LLC
Approved: Sep 18, 2009 | RLD: No | RS: No | Type: DISCN